FAERS Safety Report 8553489-0 (Version None)
Quarter: 2012Q3

REPORT INFORMATION
  Report Type: 
  Country: None (occurrence: None)
  Receive Date: 20120725
  Receipt Date: 20120725
  Transmission Date: 20120928
  Serious: Yes (Life-Threatening, Other)
  Sender: FDA-Public Use
  Company Number: None

PATIENT
  Age: 26 Year
  Sex: Female
  Weight: 50.8029 kg

DRUGS (4)
  1. SCOPOLAMINE PATCH 1.5MG ALZA CORPORATION FROM VACAVILLE CA [Suspect]
     Indication: PROPHYLAXIS OF NAUSEA AND VOMITING
     Dosage: 1 PATCH Q 3 DAYS TRANSDERMAL
     Route: 062
     Dates: start: 20120629, end: 20120706
  2. SCOPOLAMINE PATCH 1.5MG ALZA CORPORATION FROM VACAVILLE CA [Suspect]
     Indication: PROPHYLAXIS AGAINST MOTION SICKNESS
     Dosage: 1 PATCH Q 3 DAYS TRANSDERMAL
     Route: 062
     Dates: start: 20120629, end: 20120706
  3. SCOPOLAMINE PATCH 1.5MG ALZA CORPORATION FROM VACAVILLE CA [Suspect]
     Indication: PROPHYLAXIS OF NAUSEA AND VOMITING
     Dosage: 1 PATCH Q 3 DAYS TRANSDERMAL
     Route: 062
     Dates: start: 20120706, end: 20120709
  4. SCOPOLAMINE PATCH 1.5MG ALZA CORPORATION FROM VACAVILLE CA [Suspect]
     Indication: PROPHYLAXIS AGAINST MOTION SICKNESS
     Dosage: 1 PATCH Q 3 DAYS TRANSDERMAL
     Route: 062
     Dates: start: 20120706, end: 20120709

REACTIONS (9)
  - DYSPHAGIA [None]
  - NAUSEA [None]
  - VOMITING [None]
  - PALPITATIONS [None]
  - FATIGUE [None]
  - HEADACHE [None]
  - DYSPNOEA [None]
  - CHEST DISCOMFORT [None]
  - DIZZINESS [None]
